FAERS Safety Report 15784115 (Version 1)
Quarter: 2019Q1

REPORT INFORMATION
  Report Type: Spontaneous
  Country: CA (occurrence: CA)
  Receive Date: 20190103
  Receipt Date: 20190103
  Transmission Date: 20190417
  Serious: Yes (Death)
  Sender: FDA-Public Use
  Company Number: CA-009507513-1509CAN005495

PATIENT
  Age: 46 Year
  Sex: Female

DRUGS (3)
  1. TEMODAL [Suspect]
     Active Substance: TEMOZOLOMIDE
     Indication: GLIOBLASTOMA
     Dosage: 155 MG, QD
     Route: 048
  2. TEMODAL [Suspect]
     Active Substance: TEMOZOLOMIDE
     Dosage: 350 MG, QD
     Route: 048
     Dates: start: 20150507
  3. TEMODAL [Suspect]
     Active Substance: TEMOZOLOMIDE
     Dosage: 350 MG, QD FOR 5 DAYS
     Route: 048
     Dates: start: 201506, end: 201510

REACTIONS (2)
  - Incorrect dose administered [Unknown]
  - Death [Fatal]

NARRATIVE: CASE EVENT DATE: 20150507
